FAERS Safety Report 19103478 (Version 3)
Quarter: 2021Q3

REPORT INFORMATION
  Report Type: Other
  Country: US (occurrence: US)
  Receive Date: 20210407
  Receipt Date: 20210707
  Transmission Date: 20211014
  Serious: Yes (Disabling)
  Sender: FDA-Public Use
  Company Number: US-ROCHE-2797803

PATIENT
  Sex: Female
  Weight: 70 kg

DRUGS (2)
  1. EVRYSDI [Suspect]
     Active Substance: RISDIPLAM
     Indication: SPINAL MUSCULAR ATROPHY
     Dosage: FORMULATION: 0.75 MG/ML
     Route: 048
     Dates: start: 20201014
  2. COVID?19 VACCINE [Concomitant]
     Dates: start: 20210216

REACTIONS (1)
  - Asthenia [Not Recovered/Not Resolved]
